FAERS Safety Report 6257253-7 (Version None)
Quarter: 2009Q3

REPORT INFORMATION
  Report Type: 
  Country: None (occurrence: None)
  Receive Date: 20090706
  Receipt Date: 20090626
  Transmission Date: 20100115
  Serious: Yes (Hospitalization, Other)
  Sender: FDA-Public Use
  Company Number: MA-PFIZER INC-2009232844

PATIENT
  Age: 65 Year

DRUGS (1)
  1. ATORVASTATIN CALCIUM [Suspect]
     Indication: PROPHYLAXIS
     Dosage: 10 MG, 1X/DAY
     Route: 048
     Dates: start: 20090112, end: 20090614

REACTIONS (4)
  - HEPATITIS B POSITIVE [None]
  - HEPATITIS C POSITIVE [None]
  - MYALGIA [None]
  - OEDEMA [None]
